FAERS Safety Report 4801269-1 (Version None)
Quarter: 2005Q4

REPORT INFORMATION
  Report Type: 
  Country: None (occurrence: None)
  Receive Date: 20051017
  Receipt Date: 20051011
  Transmission Date: 20060501
  Serious: Yes (Hospitalization, Disabling)
  Sender: FDA-Public Use
  Company Number: FR-MERCK-0510FRA00035

PATIENT
  Age: 63 Year
  Sex: Female

DRUGS (2)
  1. NOROXIN [Suspect]
     Indication: URINARY TRACT INFECTION
     Route: 048
     Dates: start: 20050501, end: 20050501
  2. ESTROGENS, CONJUGATED AND PROGESTERONE [Concomitant]
     Indication: MENOPAUSE
     Route: 065

REACTIONS (2)
  - FALL [None]
  - TENDON RUPTURE [None]
